FAERS Safety Report 12224131 (Version 1)
Quarter: 2016Q1

REPORT INFORMATION
  Report Type: Spontaneous
  Country: US (occurrence: US)
  Receive Date: 20160330
  Receipt Date: 20160330
  Transmission Date: 20160526
  Serious: No
  Sender: FDA-Public Use
  Company Number: US-ASTRAZENECA-2016SE32790

PATIENT
  Age: 33 Year
  Sex: Female
  Weight: 74.8 kg

DRUGS (6)
  1. METOPROLOL. [Suspect]
     Active Substance: METOPROLOL
     Indication: PALPITATIONS
     Dosage: PAR, 12.5MG, DAILY
     Route: 065
     Dates: start: 2011
  2. FENOFIBRATE. [Concomitant]
     Active Substance: FENOFIBRATE
     Indication: BLOOD CHOLESTEROL ABNORMAL
     Route: 048
  3. METOPROLOL. [Suspect]
     Active Substance: METOPROLOL
     Indication: HYPERTENSION
     Dosage: PAR, 12.5MG, DAILY
     Route: 065
     Dates: start: 2011
  4. NEXIUM [Suspect]
     Active Substance: ESOMEPRAZOLE MAGNESIUM
     Indication: GASTROOESOPHAGEAL REFLUX DISEASE
     Route: 048
     Dates: start: 201406
  5. NEXIUM [Suspect]
     Active Substance: ESOMEPRAZOLE MAGNESIUM
     Indication: GASTROOESOPHAGEAL REFLUX DISEASE
     Route: 048
     Dates: start: 2005, end: 201406
  6. PRAVASTATIN [Concomitant]
     Active Substance: PRAVASTATIN\PRAVASTATIN SODIUM
     Indication: BLOOD CHOLESTEROL ABNORMAL
     Route: 048
     Dates: start: 2009

REACTIONS (12)
  - Palpitations [Recovered/Resolved]
  - Depression [Unknown]
  - Irritable bowel syndrome [Unknown]
  - Abdominal distension [Unknown]
  - Hypertension [Unknown]
  - Chest pain [Recovered/Resolved]
  - Impaired healing [Unknown]
  - Incorrect drug administration duration [Unknown]
  - Panic disorder [Unknown]
  - Supraventricular tachycardia [Unknown]
  - Diarrhoea [Unknown]
  - Anxiety [Unknown]

NARRATIVE: CASE EVENT DATE: 2005
